FAERS Safety Report 10595300 (Version 1)
Quarter: 2014Q4

REPORT INFORMATION
  Report Type: Spontaneous
  Country: US (occurrence: None)
  Receive Date: 20141119
  Receipt Date: 20141119
  Transmission Date: 20150529
  Serious: No
  Sender: FDA-Public Use
  Company Number: None

PATIENT
  Age: 73 Year
  Sex: Male
  Weight: 94.7 kg

DRUGS (1)
  1. OXYCODONE [Suspect]
     Active Substance: OXYCODONE
     Indication: PAIN
     Route: 048
     Dates: start: 20141010, end: 20141020

REACTIONS (5)
  - Headache [None]
  - Vomiting [None]
  - Nausea [None]
  - Muscle spasms [None]
  - Insomnia [None]

NARRATIVE: CASE EVENT DATE: 20141010
